FAERS Safety Report 9869394 (Version 1)
Quarter: 2014Q1

REPORT INFORMATION
  Report Type: Spontaneous
  Country: US (occurrence: US)
  Receive Date: 20140205
  Receipt Date: 20140205
  Transmission Date: 20141002
  Serious: Yes (Hospitalization)
  Sender: FDA-Public Use
  Company Number: US-BAYER-2014-017048

PATIENT
  Age: 33 Year
  Sex: Female
  Weight: 64.85 kg

DRUGS (6)
  1. YASMIN [Suspect]
  2. VICODIN [Concomitant]
  3. WELLBUTRIN [Concomitant]
  4. MILK OF MAGNESIA [Concomitant]
  5. HYDROCODONE W/APAP [Concomitant]
     Dosage: 5 MG/500 MG
     Dates: start: 20040328
  6. MOTRIN [Concomitant]

REACTIONS (2)
  - Pulmonary embolism [None]
  - Deep vein thrombosis [None]
